FAERS Safety Report 14813048 (Version 1)
Quarter: 2018Q2

REPORT INFORMATION
  Report Type: Spontaneous
  Country: FR (occurrence: FR)
  Receive Date: 20180426
  Receipt Date: 20180426
  Transmission Date: 20180711
  Serious: Yes (Other)
  Sender: FDA-Public Use
  Company Number: FR-MERCK KGAA-2046545

PATIENT
  Age: 69 Year
  Sex: Female

DRUGS (2)
  1. METFORMIN [Concomitant]
     Active Substance: METFORMIN HYDROCHLORIDE
  2. NOVOTHYROX [Suspect]
     Active Substance: LEVOTHYROXINE SODIUM
     Indication: THYROIDECTOMY
     Dates: end: 201709

REACTIONS (9)
  - Loss of personal independence in daily activities [None]
  - Palpitations [None]
  - Major depression [None]
  - Hyperacusis [None]
  - Dizziness [None]
  - Tremor [None]
  - Fatigue [None]
  - Social avoidant behaviour [None]
  - Headache [None]
